FAERS Safety Report 15349068 (Version 1)
Quarter: 2018Q3

REPORT INFORMATION
  Report Type: Spontaneous
  Country: GR (occurrence: GR)
  Receive Date: 20180904
  Receipt Date: 20180904
  Transmission Date: 20181010
  Serious: Yes (Disabling)
  Sender: FDA-Public Use
  Company Number: GR-INCYTE CORPORATION-2018IN008628

PATIENT

DRUGS (2)
  1. JAKAVI [Suspect]
     Active Substance: RUXOLITINIB
     Indication: MYELOFIBROSIS
     Dosage: 15 MG, BID
     Route: 065
     Dates: start: 2014
  2. JAKAVI [Suspect]
     Active Substance: RUXOLITINIB
     Dosage: 0.5 DF, BID, HALF A PILL TWICE
     Route: 065

REACTIONS (7)
  - Blood urea increased [Unknown]
  - Inappropriate schedule of drug administration [Unknown]
  - Hernia [Unknown]
  - Blood creatinine increased [Unknown]
  - Haematocrit decreased [Unknown]
  - Gait disturbance [Not Recovered/Not Resolved]
  - Alanine aminotransferase increased [Unknown]
